FAERS Safety Report 7671521-3 (Version None)
Quarter: 2011Q3

REPORT INFORMATION
  Report Type: 
  Country: None (occurrence: None)
  Receive Date: 20110809
  Receipt Date: 20110803
  Transmission Date: 20111222
  Serious: Yes (Hospitalization)
  Sender: FDA-Public Use
  Company Number: FR-KINGPHARMUSA00001-K201100912

PATIENT
  Age: 53 Year
  Sex: Male

DRUGS (12)
  1. KEPPRA [Suspect]
     Route: 048
  2. LOCOID [Concomitant]
     Dosage: UNK
     Dates: start: 20110501, end: 20110501
  3. ALTACE [Suspect]
     Dosage: UNK
     Route: 048
     Dates: start: 20110604, end: 20110614
  4. KAYEXALATE [Suspect]
     Dosage: UNK
     Route: 048
     Dates: start: 20110603, end: 20110626
  5. AMLODIPINE BESYLATE [Suspect]
     Dosage: UNK
     Route: 048
  6. REPAGLINIDE [Suspect]
     Indication: DIABETES MELLITUS
     Dosage: UNK
     Route: 048
     Dates: start: 20110603, end: 20110626
  7. EUPRESSYL [Suspect]
     Dosage: UNK
     Route: 048
     Dates: start: 20110529
  8. FUCIDINE CAP [Concomitant]
     Dosage: UNK
     Dates: start: 20110501
  9. SOLU-MEDROL [Concomitant]
     Dosage: UNK
     Dates: start: 20110601, end: 20110604
  10. PREDNISOLONE [Suspect]
     Dosage: UNK
     Route: 048
     Dates: start: 20110604, end: 20110627
  11. ATORVASTATIN CALCIUM [Suspect]
     Dosage: UNK
     Route: 048
     Dates: start: 20110530, end: 20110614
  12. CITALOPRAM HYDROBROMIDE [Suspect]
     Route: 048

REACTIONS (3)
  - TUBULOINTERSTITIAL NEPHRITIS [None]
  - DIZZINESS [None]
  - BLOOD CREATININE INCREASED [None]
